FAERS Safety Report 9728019 (Version 1)
Quarter: 2013Q4

REPORT INFORMATION
  Report Type: Spontaneous
  Country: US (occurrence: None)
  Receive Date: 20131203
  Receipt Date: 20131203
  Transmission Date: 20140711
  Serious: Yes (Disabling)
  Sender: FDA-Public Use
  Company Number: None

PATIENT
  Age: 16 Year
  Sex: Male
  Weight: 61.24 kg

DRUGS (2)
  1. RISPERIDONE 1 MG [Suspect]
     Indication: ANXIETY
  2. RISPERIDONE 1 MG [Suspect]
     Indication: BIPOLAR DISORDER

REACTIONS (5)
  - Sexual dysfunction [None]
  - Anorgasmia [None]
  - Genital hypoaesthesia [None]
  - Hyperprolactinaemia [None]
  - Gynaecomastia [None]
